FAERS Safety Report 12599606 (Version 12)
Quarter: 2017Q1

REPORT INFORMATION
  Report Type: Report from Study
  Country: CZ (occurrence: CZ)
  Receive Date: 20160727
  Receipt Date: 20170224
  Transmission Date: 20170428
  Serious: Yes (Other)
  Sender: FDA-Public Use
  Company Number: PHHO2016CZ010419

PATIENT
  Age: 39 Year
  Sex: Female
  Weight: 47.2 kg

DRUGS (3)
  1. METHOTREXATE. [Suspect]
     Active Substance: METHOTREXATE
     Indication: PSORIATIC ARTHROPATHY
     Route: 065
     Dates: start: 20140720, end: 20151007
  2. MILGAMMA [Concomitant]
     Active Substance: VITAMIN B
     Indication: PARALYSIS
     Route: 065
     Dates: start: 20151221
  3. AIN457 [Suspect]
     Active Substance: SECUKINUMAB
     Indication: PSORIATIC ARTHROPATHY
     Dosage: 150 MG, UNK
     Route: 058
     Dates: start: 20141008, end: 20160526

REACTIONS (1)
  - Salivary gland neoplasm [Recovering/Resolving]

NARRATIVE: CASE EVENT DATE: 20160531
